FAERS Safety Report 8628309 (Version 6)
Quarter: 2012Q4

REPORT INFORMATION
  Report Type: 
  Country: GB (occurrence: GB)
  Receive Date: 20120621
  Receipt Date: 20120829
  Transmission Date: 20130627
  Serious: Yes (Other)
  Sender: FDA-Public Use
  Company Number: PHFR2012GB003490

PATIENT
  Age: 24 Year
  Sex: Male

DRUGS (2)
  1. CLOZARIL [Suspect]
     Indication: SCHIZOPHRENIA
     Dosage: 225 mg, UNK
     Route: 048
     Dates: start: 20050603, end: 20120614
  2. HYOSCINE [Concomitant]
     Dosage: 600 mg, UNK
     Route: 060
     Dates: start: 20111102, end: 20120612

REACTIONS (7)
  - Infectious mononucleosis [Recovered/Resolved]
  - Malaise [Unknown]
  - Lymphocyte count increased [Recovered/Resolved]
  - Diarrhoea [Unknown]
  - Neutropenia [Recovered/Resolved]
  - Haemoglobin decreased [Unknown]
  - White blood cell count decreased [None]
